FAERS Safety Report 5334395-1 (Version None)
Quarter: 2007Q2

REPORT INFORMATION
  Report Type: 
  Country: None (occurrence: None)
  Receive Date: 20070525
  Receipt Date: 20070514
  Transmission Date: 20071010
  Serious: Yes (Other)
  Sender: FDA-Public Use
  Company Number: PHBS2007GB08256

PATIENT
  Age: 3 Year
  Sex: Male

DRUGS (6)
  1. AZATHIOPRINE [Concomitant]
     Indication: HEART TRANSPLANT
  2. PREDNISOLONE [Concomitant]
     Indication: HEART TRANSPLANT
  3. CO-TRIMOXAZOLE [Concomitant]
  4. ACYCLOVIR [Concomitant]
  5. NYSTATIN [Concomitant]
  6. CYCLOSPORINE [Suspect]
     Indication: HEART TRANSPLANT
     Route: 065

REACTIONS (9)
  - BLOOD CREATININE INCREASED [None]
  - CYTOMEGALOVIRUS INFECTION [None]
  - GROWTH RETARDATION [None]
  - HERPES SIMPLEX [None]
  - KIDNEY TRANSPLANT REJECTION [None]
  - MUSCLE FATIGUE [None]
  - MYALGIA [None]
  - NEUTROPENIA [None]
  - RENAL IMPAIRMENT [None]
